FAERS Safety Report 5238190-3 (Version None)
Quarter: 2007Q1

REPORT INFORMATION
  Report Type: 
  Country: None (occurrence: None)
  Receive Date: 20061208
  Receipt Date: 20050524
  Transmission Date: 20070707
  Serious: Yes (Other)
  Sender: FDA-Public Use
  Company Number: 2005UW07962

PATIENT
  Age: 73 Year
  Sex: Female
  Weight: 72.574 kg

DRUGS (3)
  1. CRESTOR [Suspect]
     Indication: BLOOD CHOLESTEROL INCREASED
     Dosage: 5 MG QD PO
     Route: 048
     Dates: start: 20050301
  2. HYZAAR [Concomitant]
  3. ACIPHEX [Concomitant]

REACTIONS (4)
  - ASTHENIA [None]
  - CHROMATURIA [None]
  - MUSCLE SPASMS [None]
  - PARAESTHESIA [None]
